FAERS Safety Report 5691020-8 (Version None)
Quarter: 2008Q2

REPORT INFORMATION
  Report Type: 
  Country: None (occurrence: None)
  Receive Date: 20080401
  Receipt Date: 20080320
  Transmission Date: 20081010
  Serious: Yes (Hospitalization, Other)
  Sender: FDA-Public Use
  Company Number: DE-PFIZER INC-2008007832

PATIENT
  Sex: Female
  Weight: 54.4 kg

DRUGS (3)
  1. LYRICA [Suspect]
     Indication: EPILEPSY
     Dosage: DAILY DOSE:450MG
     Route: 048
     Dates: start: 20080117, end: 20080123
  2. KEPPRA [Concomitant]
     Route: 048
  3. LAMOTRIGINE [Concomitant]

REACTIONS (1)
  - PERIORBITAL OEDEMA [None]
